FAERS Safety Report 7528525-0 (Version None)
Quarter: 2011Q2

REPORT INFORMATION
  Report Type: 
  Country: None (occurrence: None)
  Receive Date: 20110607
  Receipt Date: 20100914
  Transmission Date: 20111010
  Serious: No
  Sender: FDA-Public Use
  Company Number: US-ASTRAZENECA-2010SE44658

PATIENT
  Sex: Female

DRUGS (6)
  1. ANTIHYPERTENSIVES [Concomitant]
     Dosage: UNKNOWN
  2. THYROID THERAPY [Concomitant]
     Dosage: UNKNOWN
  3. ASPIRIN [Concomitant]
     Dosage: UNKNOWN
  4. PRILOSEC OTC [Suspect]
     Indication: DYSPEPSIA
     Route: 048
     Dates: start: 20100821
  5. CALCIUM /00009901/ [Concomitant]
     Dosage: UNKNOWN
  6. VITAMINS /90003601/ [Concomitant]
     Dosage: UNKNOWN

REACTIONS (2)
  - DRUG INEFFECTIVE [None]
  - INCORRECT DRUG ADMINISTRATION DURATION [None]
